FAERS Safety Report 4351203-6 (Version None)
Quarter: 2004Q2

REPORT INFORMATION
  Report Type: 
  Country: None (occurrence: None)
  Receive Date: 20040428
  Receipt Date: 20030516
  Transmission Date: 20050107
  Serious: Yes (Other)
  Sender: FDA-Public Use
  Company Number: NSADSS2003024033

PATIENT
  Age: 23 Year
  Sex: Female

DRUGS (18)
  1. ULTRAM [Suspect]
     Indication: FIBROMYALGIA
     Dosage: ORAL
     Route: 048
  2. PLAQUENIL (HDYROXYCHLOROQUINE PHOSPHATE) [Concomitant]
  3. CELEBREX [Concomitant]
  4. PREDNISONE [Concomitant]
  5. MULTIVITAMIN [Concomitant]
  6. CALCIUM (CALCIUM) [Concomitant]
  7. ORTHO TRI-CYCLEN [Concomitant]
  8. AMBIEN [Concomitant]
  9. PROCARDIA [Concomitant]
  10. ASPIRIN [Concomitant]
  11. NITROBID TOPICAL (GLYCERYL TRINITRATE) [Concomitant]
  12. ACIPHEX [Concomitant]
  13. NEURONTIN [Concomitant]
  14. ENPRIL (ENALAPRIL MALEATE) [Concomitant]
  15. REMERON [Concomitant]
  16. FLEXERIL [Concomitant]
  17. GLUCOSAMINE (GLUCOSAMINE) [Concomitant]
  18. ZOLOFT [Concomitant]

REACTIONS (1)
  - CONVULSION [None]
